FAERS Safety Report 25674147 (Version 4)
Quarter: 2025Q4

REPORT INFORMATION
  Report Type: Spontaneous
  Country: US (occurrence: US)
  Receive Date: 20250813
  Receipt Date: 20251114
  Transmission Date: 20260118
  Serious: Yes (Other)
  Sender: SUNOVION
  Company Number: US-SUMITOMO PHARMA SWITZERLAND GMBH-2025SPA010211

PATIENT
  Age: 76 Year
  Sex: Female

DRUGS (1)
  1. GEMTESA [Suspect]
     Active Substance: VIBEGRON
     Indication: Urinary incontinence
     Dosage: STARTED A MONTH AGO
     Route: 048

REACTIONS (3)
  - Skin cancer [Unknown]
  - Weight decreased [Unknown]
  - Inappropriate schedule of product administration [Unknown]
